FAERS Safety Report 9850850 (Version 1)
Quarter: 2014Q1

REPORT INFORMATION
  Report Type: Report from Study
  Country: US (occurrence: US)
  Receive Date: 20140128
  Receipt Date: 20140128
  Transmission Date: 20141002
  Serious: Yes (Hospitalization, Other)
  Sender: FDA-Public Use
  Company Number: US-ABBVIE-14P-163-1192868-00

PATIENT
  Age: 45 Year
  Sex: Male
  Weight: 81.72 kg

DRUGS (9)
  1. HUMIRA [Suspect]
     Indication: PSORIASIS
     Route: 058
     Dates: start: 2007, end: 201008
  2. HUMIRA [Suspect]
     Indication: PSORIATIC ARTHROPATHY
     Route: 058
     Dates: start: 201101, end: 201106
  3. HUMIRA [Suspect]
     Route: 058
     Dates: start: 201305
  4. BETA BLOCKER [Suspect]
     Indication: PRODUCT USED FOR UNKNOWN INDICATION
  5. LIPITOR [Concomitant]
     Indication: BLOOD CHOLESTEROL INCREASED
  6. PREDNISONE [Concomitant]
     Indication: PSORIATIC ARTHROPATHY
  7. POTASSIUM [Concomitant]
  8. OMEGA 3 [Concomitant]
  9. COQ10 [Concomitant]

REACTIONS (7)
  - Coronary artery occlusion [Recovered/Resolved]
  - Myocardial infarction [Recovered/Resolved]
  - Dyspepsia [Recovered/Resolved]
  - Pain in extremity [Recovered/Resolved]
  - Laboratory test abnormal [Recovered/Resolved]
  - Hypertension [Not Recovered/Not Resolved]
  - Drug effect decreased [Recovered/Resolved]
